FAERS Safety Report 20691419 (Version 1)
Quarter: 2022Q2

REPORT INFORMATION
  Report Type: Spontaneous
  Country: US (occurrence: US)
  Receive Date: 20220408
  Receipt Date: 20220408
  Transmission Date: 20220721
  Serious: Yes (Other)
  Sender: FDA-Public Use
  Company Number: US-TEVA-2022-US-2020043

PATIENT
  Sex: Male

DRUGS (1)
  1. LORAZEPAM [Suspect]
     Active Substance: LORAZEPAM
     Dosage: 1 MG
     Route: 065

REACTIONS (10)
  - Suicidal ideation [Unknown]
  - Drug ineffective [Unknown]
  - Product packaging quantity issue [Unknown]
  - Insomnia [Unknown]
  - Injury [Unknown]
  - Headache [Unknown]
  - Insomnia [Unknown]
  - Depression [Unknown]
  - Abdominal discomfort [Unknown]
  - Vision blurred [Unknown]
